FAERS Safety Report 21869422 (Version 1)
Quarter: 2023Q1

REPORT INFORMATION
  Report Type: Spontaneous
  Country: CA (occurrence: CA)
  Receive Date: 20230117
  Receipt Date: 20230117
  Transmission Date: 20230418
  Serious: Yes (Other)
  Sender: FDA-Public Use
  Company Number: None

PATIENT
  Age: 42 Year
  Sex: Female

DRUGS (5)
  1. MONTELUKAST [Interacting]
     Active Substance: MONTELUKAST SODIUM
     Indication: Chronic spontaneous urticaria
  2. CETIRIZINE [Interacting]
     Active Substance: CETIRIZINE HYDROCHLORIDE
     Indication: Product used for unknown indication
  3. MESALAMINE [Interacting]
     Active Substance: MESALAMINE
     Indication: Product used for unknown indication
  4. ASPIRIN [Concomitant]
     Active Substance: ASPIRIN
     Indication: Product used for unknown indication
  5. REACTINE [Concomitant]
     Indication: Product used for unknown indication

REACTIONS (11)
  - Angioedema [Unknown]
  - Asthma [Unknown]
  - COVID-19 [Unknown]
  - Drug interaction [Unknown]
  - Oral allergy syndrome [Unknown]
  - Proctitis [Unknown]
  - Rhinitis allergic [Unknown]
  - Swelling [Unknown]
  - Urticaria [Unknown]
  - Urticaria chronic [Unknown]
  - Off label use [Unknown]
